FAERS Safety Report 5675491-9 (Version None)
Quarter: 2008Q2

REPORT INFORMATION
  Report Type: 
  Country: None (occurrence: None)
  Receive Date: 20080313
  Receipt Date: 20070130
  Transmission Date: 20081010
  Serious: Yes (Other)
  Sender: FDA-Public Use
  Company Number: AEDOO20070130MED01

PATIENT
  Age: 65 Year
  Sex: Male

DRUGS (3)
  1. DERMOTIC EAR DROPS [Suspect]
     Indication: PRURITUS
     Dosage: TOPICAL
     Route: 061
  2. VASELINE INTENSIVE CAR LOTION [Concomitant]
  3. DESONIDE CREAM [Concomitant]

REACTIONS (1)
  - EAR PAIN [None]
